FAERS Safety Report 4733048-8 (Version None)
Quarter: 2005Q3

REPORT INFORMATION
  Report Type: 
  Country: None (occurrence: None)
  Receive Date: 20050801
  Receipt Date: 20050801
  Transmission Date: 20060218
  Serious: Yes (Other)
  Sender: FDA-Public Use
  Company Number: None

PATIENT
  Age: 42 Year
  Sex: Female
  Weight: 56.6996 kg

DRUGS (2)
  1. YASMIN [Suspect]
     Indication: HOT FLUSH
     Dosage: 3 MG 1 PER DAY ORAL
     Route: 048
     Dates: start: 20050712, end: 20050729
  2. YASMIN [Suspect]
     Indication: PREMATURE MENOPAUSE
     Dosage: 3 MG 1 PER DAY ORAL
     Route: 048
     Dates: start: 20050712, end: 20050729

REACTIONS (2)
  - INSOMNIA [None]
  - RESTLESS LEGS SYNDROME [None]
